FAERS Safety Report 18907832 (Version 1)
Quarter: 2021Q1

REPORT INFORMATION
  Report Type: Spontaneous
  Country: US (occurrence: US)
  Receive Date: 20210217
  Receipt Date: 20210217
  Transmission Date: 20210420
  Serious: Yes (Life-Threatening, Hospitalization, Disabling, Other)
  Sender: FDA-Public Use
  Company Number: US-AMGEN-USASP2021021300

PATIENT

DRUGS (1)
  1. FILGRASTIM [Suspect]
     Active Substance: FILGRASTIM
     Indication: HAEMATOPOIETIC STEM CELL MOBILISATION
     Dosage: 10 MICROGRAM/KILOGRAM, QD (4 OR 5 CONSEC. DAYS)
     Route: 065

REACTIONS (44)
  - Myalgia [Recovered/Resolved]
  - Headache [Unknown]
  - Decreased appetite [Unknown]
  - Vomiting [Unknown]
  - Neoplasm malignant [Unknown]
  - Rash [Recovered/Resolved]
  - Back pain [Recovered/Resolved]
  - Arthralgia [Unknown]
  - Bone pain [Unknown]
  - Dizziness [Recovered/Resolved]
  - Catheter site haemorrhage [Recovered/Resolved]
  - Neuralgia [Recovered/Resolved]
  - White blood cell count increased [Unknown]
  - Haemoglobin decreased [Unknown]
  - Pneumonia [Recovered/Resolved]
  - Acute myeloid leukaemia [Unknown]
  - Autoimmune disorder [Unknown]
  - Skin cancer [Unknown]
  - Infection [Unknown]
  - Hypokalaemia [Recovered/Resolved]
  - Oropharyngeal pain [Unknown]
  - Neck pain [Unknown]
  - Insomnia [Unknown]
  - Syncope [Unknown]
  - Anaemia [Recovered/Resolved]
  - Arthritis [Recovered/Resolved]
  - Tachyarrhythmia [Recovered/Resolved]
  - Haematuria [Recovered/Resolved]
  - Nausea [Unknown]
  - Granuloma [Recovered/Resolved]
  - Plasma cell myeloma [Unknown]
  - Chest pain [Recovered/Resolved]
  - Pain [Recovered/Resolved]
  - Pyrexia [Unknown]
  - Panic attack [Recovered/Resolved]
  - Pain in extremity [Unknown]
  - Rash [Unknown]
  - Tetany [Unknown]
  - Pulse absent [Recovered/Resolved]
  - Haemorrhage intracranial [Recovered/Resolved]
  - Pericarditis [Recovered/Resolved]
  - Fatigue [Unknown]
  - Paraesthesia [Unknown]
  - Platelet count decreased [Unknown]
